FAERS Safety Report 4869255-3 (Version None)
Quarter: 2005Q4

REPORT INFORMATION
  Report Type: 
  Country: None (occurrence: None)
  Receive Date: 20051223
  Receipt Date: 20051215
  Transmission Date: 20060501
  Serious: Yes (Hospitalization, Other)
  Sender: FDA-Public Use
  Company Number: HQWYE063816DEC05

PATIENT
  Age: 81 Year
  Sex: Female

DRUGS (6)
  1. CORDARONE [Suspect]
     Dosage: 5 TABLET 1X PER 1 WK ORAL
     Route: 048
  2. QUINAPRIL HCL [Suspect]
     Dosage: 1 UNIT 1X PER 1 DAY ORAL
     Route: 048
  3. FELDENE [Suspect]
     Indication: BACK PAIN
     Dosage: 20 MG 1X PER 1 DAY PARENTERAL
     Route: 051
     Dates: start: 20050716, end: 20050719
  4. FELDENE [Suspect]
     Indication: BACK PAIN
     Dosage: 20 MG 1X PER 1 DAY PARENTERAL
     Route: 051
     Dates: start: 20050720, end: 20050726
  5. FELDENE [Suspect]
     Indication: BACK PAIN
     Dosage: 20 MG 1X PER 1 DAY PARENTERAL
     Route: 051
     Dates: start: 20050727, end: 20051013
  6. TRIVASTAL (PIRIBEDIL) [Suspect]
     Dosage: 23 UNIT 1X PER 1 DAY ORAL
     Route: 048

REACTIONS (4)
  - ANAEMIA MACROCYTIC [None]
  - HAEMOLYTIC ANAEMIA [None]
  - HYPERSENSITIVITY [None]
  - IMMUNE SYSTEM DISORDER [None]
